FAERS Safety Report 18322140 (Version 1)
Quarter: 2020Q3

REPORT INFORMATION
  Report Type: Spontaneous
  Country: US (occurrence: US)
  Receive Date: 20200928
  Receipt Date: 20200928
  Transmission Date: 20201103
  Serious: No
  Sender: FDA-Public Use
  Company Number: US-ELI_LILLY_AND_COMPANY-US202009012003

PATIENT
  Age: 73 Year
  Sex: Male

DRUGS (1)
  1. ERBITUX [Suspect]
     Active Substance: CETUXIMAB
     Indication: HEAD AND NECK CANCER
     Dosage: 700 MG, UNKNOWN
     Route: 065

REACTIONS (4)
  - Skin disorder [Unknown]
  - Rhinalgia [Unknown]
  - Skin exfoliation [Unknown]
  - Rash [Unknown]
